FAERS Safety Report 5443044-3 (Version None)
Quarter: 2007Q3

REPORT INFORMATION
  Report Type: 
  Country: None (occurrence: None)
  Receive Date: 20070822
  Receipt Date: 20070807
  Transmission Date: 20080115
  Serious: Yes (Hospitalization)
  Sender: FDA-Public Use
  Company Number: WSDF_00664

PATIENT
  Age: 71 Year
  Sex: Female

DRUGS (1)
  1. WINRHO SDF [Suspect]
     Dates: start: 20070803, end: 20070803

REACTIONS (11)
  - ARTERIAL OCCLUSIVE DISEASE [None]
  - ASTHENIA [None]
  - BACK PAIN [None]
  - CHILLS [None]
  - FEELING COLD [None]
  - GAIT DISTURBANCE [None]
  - HEADACHE [None]
  - MYOCARDIAL INFARCTION [None]
  - PALLOR [None]
  - SEDATION [None]
  - TREMOR [None]
